FAERS Safety Report 21789883 (Version 1)
Quarter: 2022Q4

REPORT INFORMATION
  Report Type: Spontaneous
  Country: CN (occurrence: CN)
  Receive Date: 20221228
  Receipt Date: 20221228
  Transmission Date: 20230112
  Serious: Yes (Other)
  Sender: FDA-Public Use
  Company Number: CN-PFIZER INC-PV202200131017

PATIENT
  Age: 50 Year
  Sex: Female
  Weight: 60 kg

DRUGS (6)
  1. METHYLPREDNISOLONE SODIUM SUCCINATE [Suspect]
     Active Substance: METHYLPREDNISOLONE SODIUM SUCCINATE
     Indication: Antiinflammatory therapy
     Dosage: 30 MG, 1X/DAY
     Route: 041
     Dates: start: 20221126, end: 20221127
  2. METHYLPREDNISOLONE SODIUM SUCCINATE [Suspect]
     Active Substance: METHYLPREDNISOLONE SODIUM SUCCINATE
     Dosage: 80 MG, 1X/DAY
     Route: 041
     Dates: start: 20221128, end: 20221213
  3. METHYLPREDNISOLONE SODIUM SUCCINATE [Suspect]
     Active Substance: METHYLPREDNISOLONE SODIUM SUCCINATE
     Dosage: 60 MG, 1X/DAY
     Route: 041
  4. TACROLIMUS [Suspect]
     Active Substance: TACROLIMUS
     Indication: Immunosuppression
     Dosage: 2 MG, 1X/DAY
     Route: 048
     Dates: start: 20221129, end: 20221207
  5. TACROLIMUS [Suspect]
     Active Substance: TACROLIMUS
     Dosage: 1 MG, 1X/DAY
     Route: 048
     Dates: start: 20221130, end: 20221213
  6. TACROLIMUS [Suspect]
     Active Substance: TACROLIMUS
     Dosage: 1 MG, 1X/DAY
     Route: 048
     Dates: start: 20221207, end: 20221213

REACTIONS (3)
  - Steroid diabetes [Recovered/Resolved]
  - Blood glucose increased [Recovered/Resolved]
  - Blood potassium decreased [Recovered/Resolved]

NARRATIVE: CASE EVENT DATE: 20221213
